FAERS Safety Report 7743378-3 (Version None)
Quarter: 2011Q3

REPORT INFORMATION
  Report Type: 
  Country: None (occurrence: None)
  Receive Date: 20110909
  Receipt Date: 20110909
  Transmission Date: 20111222
  Serious: Yes (Other)
  Sender: FDA-Public Use
  Company Number: None

PATIENT
  Age: 28 Year
  Sex: Female
  Weight: 58.514 kg

DRUGS (2)
  1. ZOLOFT [Suspect]
     Indication: DEPRESSION
     Dosage: QAM
     Dates: start: 20110328, end: 20110519
  2. ZOLOFT [Suspect]
     Indication: ANXIETY
     Dosage: QAM
     Dates: start: 20110328, end: 20110519

REACTIONS (1)
  - INCREASED TENDENCY TO BRUISE [None]
